FAERS Safety Report 4591995-4 (Version None)
Quarter: 2005Q1

REPORT INFORMATION
  Report Type: 
  Country: None (occurrence: None)
  Receive Date: 20050125
  Receipt Date: 20041027
  Transmission Date: 20050727
  Serious: No
  Sender: FDA-Public Use
  Company Number: USA040670504

PATIENT
  Age: 68 Year
  Sex: Female

DRUGS (8)
  1. FORTEO [Suspect]
     Indication: OSTEOPOROSIS
     Dosage: 20 UG DAY
     Dates: start: 20040301
  2. SYNTHROID [Concomitant]
  3. ALBUTEROL [Concomitant]
  4. ZOCOR [Concomitant]
  5. NEXIUM [Concomitant]
  6. VITAMIN E [Concomitant]
  7. FOLIC ACID [Concomitant]
  8. VITAMIN C [Concomitant]

REACTIONS (2)
  - GASTROOESOPHAGEAL REFLUX DISEASE [None]
  - WEIGHT INCREASED [None]
